FAERS Safety Report 11447172 (Version 3)
Quarter: 2015Q4

REPORT INFORMATION
  Report Type: Report from Study
  Country: BR (occurrence: BR)
  Receive Date: 20150902
  Receipt Date: 20151005
  Transmission Date: 20160304
  Serious: Yes (Hospitalization)
  Sender: FDA-Public Use
  Company Number: PHHY2015BR090086

PATIENT
  Age: 8 Year
  Sex: Female
  Weight: 22 kg

DRUGS (3)
  1. FOLIC ACID. [Concomitant]
     Active Substance: FOLIC ACID
     Indication: PRODUCT USED FOR UNKNOWN INDICATION
     Dosage: 3 DF, QD
     Route: 065
  2. EXJADE [Suspect]
     Active Substance: DEFERASIROX
     Indication: SICKLE CELL ANAEMIA
     Dosage: 1 DF (10 MG/KG), QD
     Route: 065
     Dates: start: 201410
  3. HYDROXYUREA. [Concomitant]
     Active Substance: HYDROXYUREA
     Indication: PAIN
     Dosage: 1 DF, QD
     Route: 048
     Dates: start: 2013

REACTIONS (4)
  - Pyrexia [Unknown]
  - Pneumonia [Unknown]
  - Sickle cell anaemia with crisis [Unknown]
  - Urinary tract infection [Unknown]

NARRATIVE: CASE EVENT DATE: 201501
